FAERS Safety Report 10287177 (Version 1)
Quarter: 2014Q3

REPORT INFORMATION
  Report Type: Spontaneous
  Country: US (occurrence: US)
  Receive Date: 20140709
  Receipt Date: 20140709
  Transmission Date: 20150326
  Serious: No
  Sender: FDA-Public Use
  Company Number: US-LUNDBECK-DKLU1100591

PATIENT
  Sex: Female

DRUGS (4)
  1. SABRIL [Suspect]
     Active Substance: VIGABATRIN
     Indication: PRODUCT USED FOR UNKNOWN INDICATION
     Dates: start: 20140307
  2. SABRIL [Suspect]
     Active Substance: VIGABATRIN
     Dates: start: 20140529
  3. TOPAMAX [Concomitant]
     Active Substance: TOPIRAMATE
     Indication: PRODUCT USED FOR UNKNOWN INDICATION
  4. ACTH [Concomitant]
     Active Substance: CORTICOTROPIN
     Indication: PRODUCT USED FOR UNKNOWN INDICATION

REACTIONS (2)
  - Wrong technique in drug usage process [Recovered/Resolved]
  - Infantile spitting up [Unknown]
